FAERS Safety Report 7326931-0 (Version None)
Quarter: 2011Q1

REPORT INFORMATION
  Report Type: 
  Country: None (occurrence: None)
  Receive Date: 20110222
  Receipt Date: 20101013
  Transmission Date: 20110831
  Serious: No
  Sender: FDA-Public Use
  Company Number: 1570

PATIENT
  Age: 72 Year
  Sex: Male

DRUGS (1)
  1. ECONAZOLE NITRATE [Suspect]
     Indication: RASH
     Dosage: AS NEEDED, TOPICAL
     Route: 061
     Dates: start: 20100625, end: 20100101

REACTIONS (2)
  - DRUG INEFFECTIVE [None]
  - PRODUCT SUBSTITUTION ISSUE [None]
